FAERS Safety Report 14055054 (Version 1)
Quarter: 2017Q4

REPORT INFORMATION
  Report Type: Report from Study
  Country: JP (occurrence: JP)
  Receive Date: 20171006
  Receipt Date: 20171006
  Transmission Date: 20180321
  Serious: Yes (Other)
  Sender: FDA-Public Use
  Company Number: JP-ROCHE-2002924

PATIENT

DRUGS (1)
  1. TOCILIZUMAB. [Suspect]
     Active Substance: TOCILIZUMAB
     Indication: RHEUMATOID ARTHRITIS
     Route: 042

REACTIONS (10)
  - Sudden hearing loss [Unknown]
  - Facial paralysis [Unknown]
  - Arthritis bacterial [Unknown]
  - Influenza like illness [Unknown]
  - Cellulitis [Unknown]
  - Leukopenia [Unknown]
  - Rash [Unknown]
  - Skin ulcer [Unknown]
  - Sinusitis [Unknown]
  - Herpes zoster [Unknown]
